FAERS Safety Report 21878388 (Version 1)
Quarter: 2023Q1

REPORT INFORMATION
  Report Type: Report from Study
  Country: US (occurrence: US)
  Receive Date: 20230118
  Receipt Date: 20230118
  Transmission Date: 20230417
  Serious: No
  Sender: FDA-Public Use
  Company Number: US-ABBVIE-22K-163-4524154-00

PATIENT
  Age: 63 Year
  Sex: Female

DRUGS (5)
  1. SKYRIZI [Suspect]
     Active Substance: RISANKIZUMAB-RZAA
     Indication: Psoriasis
     Dosage: FORM STRENGTH 150 MILLIGRAM?WEEK 0
     Route: 058
     Dates: start: 20220621, end: 20220621
  2. SKYRIZI [Suspect]
     Active Substance: RISANKIZUMAB-RZAA
     Indication: Psoriasis
     Dosage: FORM STRENGTH 150 MILLIGRAM?WEEK 4
     Route: 058
     Dates: start: 20220719, end: 20220719
  3. SKYRIZI [Suspect]
     Active Substance: RISANKIZUMAB-RZAA
     Dosage: FORM STRENGTH 150 MILLIGRAM?WEEK 0
     Route: 058
     Dates: start: 20220621
  4. SKYRIZI [Suspect]
     Active Substance: RISANKIZUMAB-RZAA
     Dosage: FORM STRENGTH 150 MILLIGRAM?EVERY 12 WEEKS THEREAFTER
     Route: 058
     Dates: start: 20221022
  5. CLOBETASOL [Concomitant]
     Active Substance: CLOBETASOL
     Indication: Product used for unknown indication

REACTIONS (6)
  - COVID-19 [Unknown]
  - Alopecia [Not Recovered/Not Resolved]
  - Therapeutic product effect incomplete [Unknown]
  - Psoriasis [Unknown]
  - Pain [Unknown]
  - Menopausal symptoms [Unknown]

NARRATIVE: CASE EVENT DATE: 20220725
